FAERS Safety Report 6127362-1 (Version None)
Quarter: 2009Q1

REPORT INFORMATION
  Report Type: 
  Country: None (occurrence: None)
  Receive Date: 20090319
  Receipt Date: 20090303
  Transmission Date: 20090719
  Serious: Yes (Death)
  Sender: FDA-Public Use
  Company Number: 2009S1003702

PATIENT
  Age: 67 Year
  Sex: Male

DRUGS (3)
  1. AZATHIOPRINE [Suspect]
     Indication: RHEUMATOID ARTHRITIS
     Dosage: 200 MG;
  2. REMICADE [Suspect]
     Indication: RHEUMATOID ARTHRITIS
     Dosage: 3 MG; 3 TIMES A DAY INTRAVENOUS
     Route: 042
  3. PREDNISOLONE [Concomitant]

REACTIONS (2)
  - ALVEOLITIS FIBROSING [None]
  - CONDITION AGGRAVATED [None]
